FAERS Safety Report 12616589 (Version 1)
Quarter: 2016Q3

REPORT INFORMATION
  Report Type: Spontaneous
  Country: US (occurrence: US)
  Receive Date: 20160802
  Receipt Date: 20160802
  Transmission Date: 20161109
  Serious: No
  Sender: FDA-Public Use
  Company Number: US-IMPAX LABORATORIES, INC-2015-IPXL-01293

PATIENT
  Age: 58 Year
  Sex: Female
  Weight: 82.54 kg

DRUGS (4)
  1. ALBENZA [Suspect]
     Active Substance: ALBENDAZOLE
     Indication: INFECTION PARASITIC
     Dosage: 400 MG, (TWO TABLETS OF 200 MG)
     Route: 048
     Dates: start: 20151106, end: 20151106
  2. ALBENZA [Suspect]
     Active Substance: ALBENDAZOLE
     Dosage: 400 MG, (TWO TABLETS OF 200 MG)
     Route: 048
     Dates: start: 20151109, end: 20151109
  3. LIPITOR [Concomitant]
     Active Substance: ATORVASTATIN CALCIUM
     Indication: BLOOD CHOLESTEROL INCREASED
     Dosage: 20 MG, UNK
     Route: 065
  4. ALBENZA [Suspect]
     Active Substance: ALBENDAZOLE
     Dosage: 400 MG, DAILY
     Route: 048
     Dates: start: 20151211, end: 20151213

REACTIONS (8)
  - Burning sensation [Unknown]
  - Anxiety [Unknown]
  - Infection parasitic [Not Recovered/Not Resolved]
  - Fatigue [Not Recovered/Not Resolved]
  - Drug ineffective [Unknown]
  - Inappropriate schedule of drug administration [Unknown]
  - Disease recurrence [Not Recovered/Not Resolved]
  - Condition aggravated [Unknown]

NARRATIVE: CASE EVENT DATE: 201511
